FAERS Safety Report 10264590 (Version 17)
Quarter: 2021Q3

REPORT INFORMATION
  Report Type: Report from Study
  Country: CA (occurrence: CA)
  Receive Date: 20140627
  Receipt Date: 20210715
  Transmission Date: 20211014
  Serious: Yes (Other)
  Sender: FDA-Public Use
  Company Number: PHHY2013CA110482

PATIENT
  Age: 68 Year
  Sex: Female

DRUGS (6)
  1. SANDOSTATIN LAR DEPOT [Suspect]
     Active Substance: OCTREOTIDE ACETATE
     Indication: CARCINOID TUMOUR OF THE SMALL BOWEL
     Dosage: 30 MG, QMO (ONCE A MONTH/EVERY 4 WEEKS)
     Route: 030
     Dates: start: 20130904
  2. SANDOSTATIN LAR DEPOT [Suspect]
     Active Substance: OCTREOTIDE ACETATE
     Dosage: 20 MG, QMO ( EVERY 28 DAYS)
     Route: 030
     Dates: start: 20150519
  3. SANDOSTATIN LAR DEPOT [Suspect]
     Active Substance: OCTREOTIDE ACETATE
     Dosage: 30 MG, QMO ( EVERY 28 DAYS)
     Route: 030
     Dates: start: 20151007
  4. SYNTHROID [Concomitant]
     Active Substance: LEVOTHYROXINE SODIUM
     Indication: HYPOTHYROIDISM
     Dosage: UNK
     Route: 058
  5. SANDOSTATIN LAR DEPOT [Suspect]
     Active Substance: OCTREOTIDE ACETATE
     Dosage: UNK
     Route: 030
     Dates: start: 20170418
  6. LEVOTHYROXINE SODIUM. [Concomitant]
     Active Substance: LEVOTHYROXINE SODIUM
     Indication: THYROID DISORDER
     Route: 065

REACTIONS (37)
  - Cholelithiasis [Not Recovered/Not Resolved]
  - Tremor [Unknown]
  - Flank pain [Unknown]
  - Discomfort [Unknown]
  - Urticaria [Unknown]
  - Cardiac flutter [Unknown]
  - Nail bed disorder [Unknown]
  - Palpitations [Recovered/Resolved]
  - Palpitations [Unknown]
  - Thrombosis [Unknown]
  - Skin lesion [Unknown]
  - Agitation [Unknown]
  - Blood pressure systolic increased [Unknown]
  - Needle issue [Unknown]
  - Kidney infection [Unknown]
  - Nail disorder [Unknown]
  - Onychoclasis [Unknown]
  - Anxiety [Recovered/Resolved]
  - Nervousness [Unknown]
  - Chest pain [Unknown]
  - Rash [Recovered/Resolved]
  - Body temperature decreased [Unknown]
  - Kidney infection [Recovered/Resolved]
  - Asthenia [Unknown]
  - Back pain [Unknown]
  - Malaise [Unknown]
  - Anxiety [Unknown]
  - Injection site pain [Unknown]
  - Candida infection [Unknown]
  - Feeling cold [Unknown]
  - Blood pressure increased [Unknown]
  - Heart rate decreased [Unknown]
  - Injection site mass [Unknown]
  - Flushing [Not Recovered/Not Resolved]
  - Fatigue [Recovering/Resolving]
  - Constipation [Unknown]
  - Alopecia [Unknown]

NARRATIVE: CASE EVENT DATE: 20140127
